FAERS Safety Report 18332058 (Version 1)
Quarter: 2020Q3

REPORT INFORMATION
  Report Type: Spontaneous
  Country: IN (occurrence: IN)
  Receive Date: 20200930
  Receipt Date: 20200930
  Transmission Date: 20201103
  Serious: Yes (Death)
  Sender: FDA-Public Use
  Company Number: IN-GE HEALTHCARE LIFE SCIENCES-2020CSU004882

PATIENT

DRUGS (2)
  1. OMNIPAQUE [Suspect]
     Active Substance: IOHEXOL
     Indication: PRODUCT USED FOR UNKNOWN INDICATION
  2. OMNIPAQUE [Suspect]
     Active Substance: IOHEXOL
     Indication: ANGIOPLASTY
     Dosage: 210 ML, SINGLE
     Route: 013
     Dates: start: 20200908, end: 20200908

REACTIONS (2)
  - Chills [Fatal]
  - Dyspnoea [Fatal]

NARRATIVE: CASE EVENT DATE: 20200908
